FAERS Safety Report 13905990 (Version 1)
Quarter: 2017Q3

REPORT INFORMATION
  Report Type: Spontaneous
  Country: US (occurrence: US)
  Receive Date: 20170825
  Receipt Date: 20170825
  Transmission Date: 20171127
  Serious: Yes (Hospitalization)
  Sender: FDA-Public Use
  Company Number: None

PATIENT
  Age: 46 Year
  Sex: Female

DRUGS (5)
  1. IBRANCE [Suspect]
     Active Substance: PALBOCICLIB
     Indication: BREAST CANCER
     Route: 048
     Dates: start: 20170525
  2. CALCIUM [Concomitant]
     Active Substance: CALCIUM
  3. TRAMADOL. [Concomitant]
     Active Substance: TRAMADOL
  4. FEMARA [Concomitant]
     Active Substance: LETROZOLE
  5. CALCIFEROL [Concomitant]
     Active Substance: ERGOCALCIFEROL

REACTIONS (1)
  - Ovarian operation [None]

NARRATIVE: CASE EVENT DATE: 20170824
